FAERS Safety Report 7873898-2 (Version None)
Quarter: 2011Q4

REPORT INFORMATION
  Report Type: 
  Country: None (occurrence: None)
  Receive Date: 20111030
  Receipt Date: 20110511
  Transmission Date: 20120403
  Serious: No
  Sender: FDA-Public Use
  Company Number: US-AMGEN-USASP2011024429

PATIENT
  Age: 66 Year
  Sex: Male

DRUGS (3)
  1. ENBREL [Suspect]
     Indication: PSORIATIC ARTHROPATHY
  2. METHOTREXATE [Concomitant]
  3. ENBREL [Suspect]
     Indication: PSORIASIS
     Dosage: UNK
     Dates: start: 20000101

REACTIONS (4)
  - DRUG INEFFECTIVE [None]
  - PNEUMONIA [None]
  - PAIN IN EXTREMITY [None]
  - MUSCULOSKELETAL DISCOMFORT [None]
